FAERS Safety Report 4762565-X (Version None)
Quarter: 2005Q3

REPORT INFORMATION
  Report Type: 
  Country: None (occurrence: None)
  Receive Date: 20050826
  Receipt Date: 20050325
  Transmission Date: 20060218
  Serious: Yes (Other)
  Sender: FDA-Public Use
  Company Number: USA-2005-0019512

PATIENT
  Age: 29 Year
  Sex: Male

DRUGS (3)
  1. OXYCONTIN [Suspect]
     Indication: PAIN
     Dates: start: 20031201
  2. LORTAB [Concomitant]
  3. PERCOCET [Concomitant]

REACTIONS (1)
  - DRUG DEPENDENCE [None]
